FAERS Safety Report 8795488 (Version 2)
Quarter: 2012Q4

REPORT INFORMATION
  Report Type: 
  Country: US (occurrence: US)
  Receive Date: 20120917
  Receipt Date: 20121213
  Transmission Date: 20130627
  Serious: Yes (Other)
  Sender: FDA-Public Use
  Company Number: US-PFIZER INC-2012228076

PATIENT
  Age: 85 Year
  Sex: Female
  Weight: 77.1 kg

DRUGS (10)
  1. LIPITOR [Suspect]
     Indication: HIGH CHOLESTEROL
     Dosage: 10 mg, daily
  2. LIPITOR [Suspect]
     Indication: BLOOD PRESSURE HIGH
     Dosage: 20 mg, daily
  3. OXYBUTYNIN [Concomitant]
     Indication: BLADDER INCONTINENCE
     Dosage: 10 mg, 1x/day
  4. OMEPRAZOLE [Concomitant]
     Indication: GASTRIC DISORDER
     Dosage: 40 mg, 1x/day
  5. LEVOXYL [Concomitant]
     Indication: THYROID DISORDER
     Dosage: 112 ug, 1x/day
  6. AMLODIPINE [Concomitant]
     Dosage: 10 mg, 1x/day
  7. HYDRALAZINE [Concomitant]
     Dosage: 10 mg, 3x/day
  8. HYDROCHLOROTHIAZIDE/TRIAMTERENE [Concomitant]
     Dosage: 75/50 mg, 1x/day
  9. HYDROCODONE W/ACETAMINOPHEN [Concomitant]
     Indication: ARTHRITIS
     Dosage: 5/500 mg,3x/day
  10. LISINOPRIL [Concomitant]
     Dosage: 40 mg, 1x/day

REACTIONS (7)
  - Myocardial infarction [Recovered/Resolved]
  - Renal cancer [Recovered/Resolved]
  - Gastric ulcer [Unknown]
  - Limb discomfort [Unknown]
  - Limb discomfort [Unknown]
  - Oedema peripheral [Unknown]
  - Blood test abnormal [Unknown]
